FAERS Safety Report 9828006 (Version 1)
Quarter: 2013Q4

REPORT INFORMATION
  Report Type: Spontaneous
  Country: US (occurrence: None)
  Receive Date: 20131120
  Receipt Date: 20131120
  Transmission Date: 20140711
  Serious: Yes (Hospitalization)
  Sender: FDA-Public Use
  Company Number: SP06642

PATIENT
  Age: 34 Year
  Sex: Male
  Weight: 113 kg

DRUGS (1)
  1. APRISO [Suspect]
     Route: 048
     Dates: end: 20130506

REACTIONS (3)
  - Abdominal pain upper [None]
  - Lipase increased [None]
  - Pancreatitis acute [None]
